FAERS Safety Report 6935319-3 (Version None)
Quarter: 2010Q3

REPORT INFORMATION
  Report Type: 
  Country: None (occurrence: None)
  Receive Date: 20100823
  Receipt Date: 20100816
  Transmission Date: 20110219
  Serious: Yes (Other)
  Sender: FDA-Public Use
  Company Number: US-ASTRAZENECA-2009UW11470

PATIENT
  Age: 68 Year
  Sex: Female
  Weight: 83.9 kg

DRUGS (4)
  1. SEROQUEL [Suspect]
     Indication: INSOMNIA
     Dosage: 25 MG TO 400 MG
     Route: 048
     Dates: start: 20040101, end: 20090301
  2. SEROQUEL [Suspect]
     Indication: BIPOLAR DISORDER
     Dosage: 25 MG TO 400 MG
     Route: 048
     Dates: start: 20040101, end: 20090301
  3. SEROQUEL [Suspect]
     Indication: DEPRESSION
     Dosage: 25 MG TO 400 MG
     Route: 048
     Dates: start: 20040101, end: 20090301
  4. ABILIFY [Concomitant]

REACTIONS (2)
  - HIP ARTHROPLASTY [None]
  - TYPE 2 DIABETES MELLITUS [None]
